FAERS Safety Report 17313583 (Version 1)
Quarter: 2020Q1

REPORT INFORMATION
  Report Type: Spontaneous
  Country: US (occurrence: US)
  Receive Date: 20200124
  Receipt Date: 20200124
  Transmission Date: 20200409
  Serious: No
  Sender: FDA-Public Use
  Company Number: US-EMMAUS MEDICAL, INC.-EMM201910-000294

PATIENT
  Age: 13 Year
  Sex: Male

DRUGS (8)
  1. HFA INHALER [Concomitant]
     Indication: ASTHMA
  2. ENDARI [Suspect]
     Active Substance: GLUTAMINE
     Indication: SICKLE CELL DISEASE
     Dosage: BEFORE GOING TO SCHOOL AT AROUND 06.00 AM AND BEFORE GOING TO BED AROUND 06.00 PM.
     Route: 048
     Dates: start: 20190808
  3. PROAIR HFA [Concomitant]
     Active Substance: ALBUTEROL SULFATE
     Indication: ASTHMA
  4. HYDROXYUREA. [Concomitant]
     Active Substance: HYDROXYUREA
     Indication: SICKLE CELL ANAEMIA
     Dosage: 2 CAPSULE ON EVEN DAYS AND 3 CAPSULES ON ODD DAYS.
     Route: 048
  5. JADENU [Concomitant]
     Active Substance: DEFERASIROX
     Indication: MINERAL SUPPLEMENTATION
     Route: 048
  6. FOLIC ACID. [Concomitant]
     Active Substance: FOLIC ACID
     Indication: PRODUCT USED FOR UNKNOWN INDICATION
  7. ZYRTEC [Concomitant]
     Active Substance: CETIRIZINE HYDROCHLORIDE
     Indication: ASTHMA
  8. PENICILLIN-VK [Concomitant]
     Active Substance: PENICILLIN V POTASSIUM
     Indication: PRODUCT USED FOR UNKNOWN INDICATION

REACTIONS (4)
  - Pelvic pain [Recovering/Resolving]
  - Abdominal pain upper [Recovering/Resolving]
  - Defaecation disorder [Recovering/Resolving]
  - Pain in extremity [Recovering/Resolving]

NARRATIVE: CASE EVENT DATE: 201909
